FAERS Safety Report 7831360-7 (Version None)
Quarter: 2011Q4

REPORT INFORMATION
  Report Type: 
  Country: None (occurrence: None)
  Receive Date: 20111021
  Receipt Date: 20111017
  Transmission Date: 20120403
  Serious: Yes (Death)
  Sender: FDA-Public Use
  Company Number: JP-ELI_LILLY_AND_COMPANY-JP201107005542

PATIENT
  Sex: Female
  Weight: 36.3 kg

DRUGS (5)
  1. SENNOSIDE [Concomitant]
     Indication: CONSTIPATION
     Dosage: 5 MG, QD
     Route: 048
     Dates: start: 20100211, end: 20100322
  2. MORPHINE SULFATE [Concomitant]
     Indication: CANCER PAIN
     Dosage: 20 MG, QD
     Route: 048
     Dates: start: 20100128, end: 20100322
  3. GEMZAR [Suspect]
     Dosage: 297.5 MG, OTHER
     Route: 042
     Dates: start: 20100319, end: 20100319
  4. OMEPRAZOLE [Concomitant]
     Indication: PROPHYLAXIS AGAINST GASTROINTESTINAL ULCER
     Dosage: 10 MG, QD
     Route: 048
     Dates: start: 20100301, end: 20100322
  5. GEMZAR [Suspect]
     Indication: ADENOCARCINOMA PANCREAS
     Dosage: 1000 MG/M2, OTHER
     Route: 042
     Dates: start: 20100219, end: 20100319

REACTIONS (3)
  - GASTROINTESTINAL PERFORATION [None]
  - ANAEMIA [None]
  - NEOPLASM PROGRESSION [None]
